FAERS Safety Report 21952334 (Version 3)
Quarter: 2023Q1

REPORT INFORMATION
  Report Type: Report from Study
  Country: US (occurrence: US)
  Receive Date: 20230203
  Receipt Date: 20230324
  Transmission Date: 20230417
  Serious: Yes (Hospitalization, Other)
  Sender: FDA-Public Use
  Company Number: US-GILEAD-2023-0615280

PATIENT
  Age: 64 Year
  Sex: Female

DRUGS (49)
  1. AZTREONAM LYSINE [Suspect]
     Active Substance: AZTREONAM LYSINE
     Indication: Pseudomonas infection
     Dosage: 75 MG, TID, 1 ML (75 MG) VIA ALTERA NEBULIZER. THREE TIMES DAILY FOR 28 DAYS ON AND 28 DAYS OFF.
     Route: 055
     Dates: start: 202112
  2. AZTREONAM LYSINE [Suspect]
     Active Substance: AZTREONAM LYSINE
     Indication: Cystic fibrosis
     Dosage: 75 MG VIA ALTERA NEBULIZER THREE TIMES DAILY FOR 28 DAYS ON AND 28 DAYS OFF
     Route: 055
     Dates: start: 202102
  3. ACETAMINOPHEN [Concomitant]
     Active Substance: ACETAMINOPHEN
  4. ALPRAZOLAM [Concomitant]
     Active Substance: ALPRAZOLAM
  5. BACLOFEN [Concomitant]
     Active Substance: BACLOFEN
  6. TESSALON [Concomitant]
     Active Substance: BENZONATATE
  7. PROLIA [Concomitant]
     Active Substance: DENOSUMAB
  8. CLIMARA [Concomitant]
     Active Substance: ESTRADIOL
  9. DIFLUCAN [Concomitant]
     Active Substance: FLUCONAZOLE
  10. ENSURE ENLIVE [Concomitant]
  11. FERROUS SULFATE [Concomitant]
     Active Substance: FERROUS SULFATE
  12. GABAPENTIN [Concomitant]
     Active Substance: GABAPENTIN
  13. NYSTATIN [Concomitant]
     Active Substance: NYSTATIN
  14. OMEPRAZOLE [Concomitant]
     Active Substance: OMEPRAZOLE
  15. SINGULAIR [Concomitant]
     Active Substance: MONTELUKAST SODIUM
  16. XALATAN [Concomitant]
     Active Substance: LATANOPROST
  17. TRIKAFTA [Concomitant]
     Active Substance: ELEXACAFTOR\IVACAFTOR\TEZACAFTOR
     Indication: Cystic fibrosis
     Dosage: TAKE 2 ORANGE TABLETS IN THE MORNING AND 1 BLUE TABLET IN THE EVENING APPROXIMATELY 12 HOURS APART.
     Dates: start: 202102
  18. LEVALBUTEROL HYDROCHLORIDE [Concomitant]
     Active Substance: LEVALBUTEROL HYDROCHLORIDE
  19. PULMOZYME [Concomitant]
     Active Substance: DORNASE ALFA
  20. SOTALOL [Concomitant]
     Active Substance: SOTALOL
     Dosage: 80 MG
  21. ELIQUIS [Concomitant]
     Active Substance: APIXABAN
     Dosage: 2.5 MG TABLET
     Route: 065
  22. XANAX [Concomitant]
     Active Substance: ALPRAZOLAM
     Dosage: 0.25 MG TABLET
  23. ZOFRAN [Concomitant]
     Active Substance: ONDANSETRON HYDROCHLORIDE
     Dosage: 4 MG TABLET
  24. LEVALBUTEROL [Concomitant]
     Active Substance: LEVALBUTEROL
  25. ESTRADIOL [ESTRADIOL BENZOATE] [Concomitant]
     Dosage: ONCE WEEKLY
  26. ZINC [Concomitant]
     Active Substance: ZINC
     Dosage: UNK
  27. BACLOFEN [Concomitant]
     Active Substance: BACLOFEN
     Dosage: 100 % POWDER
  28. ESTRACE [Concomitant]
     Active Substance: ESTRADIOL
     Dosage: 0.01 % CREAM/APPL
  29. TYLENOL FORTE [Concomitant]
     Dosage: 325 MG TABLET
  30. LATANOPROST ZYDUS [Concomitant]
  31. COLISTIMETHATE SODIUM [Concomitant]
     Active Substance: COLISTIMETHATE SODIUM
     Dosage: 150 MG VIAL
  32. CYPROHEPTADINE HYDROCHLORIDE [Concomitant]
     Active Substance: CYPROHEPTADINE HYDROCHLORIDE
     Dosage: 100% POWDER
  33. TAGAMET HB [Concomitant]
     Active Substance: CIMETIDINE
     Dosage: 200 MG
  34. BIOTIN [Concomitant]
     Active Substance: BIOTIN
     Dosage: 100 % POWDER
  35. MAGNESIUM ACETATE [Concomitant]
     Active Substance: MAGNESIUM ACETATE
     Dosage: 80 MG, TABLET
  36. ASCORBIC ACID\IRON [Concomitant]
     Active Substance: ASCORBIC ACID\IRON
  37. ADULT MULTIVITAMIN [Concomitant]
  38. ENSURE ACTIVE HIGH PROTEIN [Concomitant]
  39. SOTALOL [Concomitant]
     Active Substance: SOTALOL
  40. MAGNESIUM [Concomitant]
     Active Substance: MAGNESIUM
  41. FERROUS BISGLYCINATE [Concomitant]
     Active Substance: FERROUS BISGLYCINATE
  42. ESTRADIOL [Concomitant]
     Active Substance: ESTRADIOL
  43. ESTRACE [Concomitant]
     Active Substance: ESTRADIOL
  44. TYLENOL [Concomitant]
     Active Substance: ACETAMINOPHEN
  45. LATANOPROST [Concomitant]
     Active Substance: LATANOPROST
  46. COLISTIMETAT [Concomitant]
  47. MELATONIN;THEANINE [Concomitant]
  48. ENSURE [Concomitant]
     Active Substance: AMINO ACIDS\DEXTROSE\ELECTROLYTES NOS\SOYBEAN OIL\VITAMINS
  49. KATE FARMS PEPTIDE [Concomitant]

REACTIONS (3)
  - Atrial flutter [Not Recovered/Not Resolved]
  - Arrhythmia [Not Recovered/Not Resolved]
  - Cardiac disorder [Unknown]
